FAERS Safety Report 4667955-1 (Version None)
Quarter: 2005Q2

REPORT INFORMATION
  Report Type: 
  Country: None (occurrence: None)
  Receive Date: 20050520
  Receipt Date: 20050428
  Transmission Date: 20051028
  Serious: Yes (Hospitalization)
  Sender: FDA-Public Use
  Company Number: 2005AP02575

PATIENT
  Age: 27787 Day
  Sex: Male

DRUGS (5)
  1. IRESSA [Suspect]
     Indication: LUNG ADENOCARCINOMA
     Route: 048
     Dates: start: 20050408, end: 20050502
  2. IRESSA [Suspect]
     Indication: NON-SMALL CELL LUNG CANCER
     Route: 048
     Dates: start: 20050408, end: 20050502
  3. GASMET [Concomitant]
     Indication: GASTROINTESTINAL ULCER
     Route: 048
     Dates: start: 20050323
  4. HALFDIGOXIN [Concomitant]
     Indication: ATRIAL FIBRILLATION
     Route: 048
  5. TORSEMIDE [Concomitant]
     Indication: PLEURAL EFFUSION
     Route: 048

REACTIONS (4)
  - ANOREXIA [None]
  - CONDITION AGGRAVATED [None]
  - MALAISE [None]
  - PLEURAL EFFUSION [None]
